FAERS Safety Report 5264652-9 (Version None)
Quarter: 2007Q1

REPORT INFORMATION
  Report Type: 
  Country: None (occurrence: None)
  Receive Date: 20070314
  Receipt Date: 20070302
  Transmission Date: 20070707
  Serious: Yes (Hospitalization, Other)
  Sender: FDA-Public Use
  Company Number: DE-JNJFOC-20070203189

PATIENT
  Sex: Female
  Weight: 55 kg

DRUGS (1)
  1. CONCERTA [Suspect]
     Indication: DRUG USE FOR UNKNOWN INDICATION
     Route: 048

REACTIONS (7)
  - ANXIETY [None]
  - HYPERHIDROSIS [None]
  - OVERDOSE [None]
  - RESTLESSNESS [None]
  - SENSORY DISTURBANCE [None]
  - SUICIDE ATTEMPT [None]
  - TACHYCARDIA [None]
